FAERS Safety Report 24345885 (Version 1)
Quarter: 2024Q3

REPORT INFORMATION
  Report Type: Spontaneous
  Country: US (occurrence: US)
  Receive Date: 20240920
  Receipt Date: 20240920
  Transmission Date: 20241017
  Serious: No
  Sender: MERCK
  Company Number: US-009507513-2409USA006007

PATIENT
  Age: 17 Week
  Sex: Female

DRUGS (2)
  1. TRUSOPT [Suspect]
     Active Substance: DORZOLAMIDE HYDROCHLORIDE
     Indication: Glaucoma
     Dosage: TWO TIMES A DAY (BID) IN BOTH EYES (OU)
  2. LATANOPROST [Suspect]
     Active Substance: LATANOPROST
     Indication: Glaucoma
     Dosage: EVERY NIGHT AT BEDTIME (QHS) IN BOTH EYES (OU)

REACTIONS (1)
  - Product use issue [Unknown]
